FAERS Safety Report 25198644 (Version 2)
Quarter: 2025Q2

REPORT INFORMATION
  Report Type: Spontaneous
  Country: CN (occurrence: CN)
  Receive Date: 20250415
  Receipt Date: 20250509
  Transmission Date: 20250716
  Serious: Yes (Hospitalization, Other)
  Sender: Haleon PLC
  Company Number: CN-HALEON-2237726

PATIENT
  Age: 9 Year
  Sex: Female
  Weight: 19.5 kg

DRUGS (10)
  1. DICLOFENAC SODIUM [Suspect]
     Active Substance: DICLOFENAC SODIUM
     Indication: Arthritis
     Route: 048
     Dates: start: 20250324, end: 20250402
  2. CEFTRIAXONE SODIUM [Suspect]
     Active Substance: CEFTRIAXONE SODIUM
     Indication: Arthritis
     Dosage: POWDER INJECTION
     Dates: start: 20250321, end: 20250401
  3. NADROPARIN CALCIUM [Suspect]
     Active Substance: NADROPARIN CALCIUM
     Indication: Arthritis
     Route: 058
     Dates: start: 20250321, end: 20250401
  4. METHYLPREDNISOLONE SODIUM SUCCINATE [Suspect]
     Active Substance: METHYLPREDNISOLONE SODIUM SUCCINATE
     Indication: Arthritis
     Dosage: POWDER INJECTION AND ROUTE OF ADMINISTRATION WAS REPORTED AS INTRAVENOUS DRIP
     Dates: start: 20250326, end: 20250328
  5. PREDNISONE ACETATE [Suspect]
     Active Substance: PREDNISONE ACETATE
     Indication: Arthritis
     Route: 048
     Dates: start: 20250328, end: 20250406
  6. L-Glutamine and Sodium Guarenate [Concomitant]
     Indication: Arthritis
     Route: 048
     Dates: start: 20250324, end: 20250409
  7. SODIUM CHLORIDE [Concomitant]
     Active Substance: SODIUM CHLORIDE
     Indication: Product used for unknown indication
     Dates: start: 20250321, end: 20250401
  8. SODIUM CHLORIDE [Concomitant]
     Active Substance: SODIUM CHLORIDE
     Dates: start: 20250326, end: 20250328
  9. SODIUM CHLORIDE [Concomitant]
     Active Substance: SODIUM CHLORIDE
     Dates: start: 20250401, end: 20250409
  10. SODIUM CHLORIDE [Concomitant]
     Active Substance: SODIUM CHLORIDE
     Dates: start: 20250403, end: 20250409

REACTIONS (3)
  - Alanine aminotransferase increased [Recovering/Resolving]
  - Aspartate aminotransferase increased [Recovering/Resolving]
  - Gamma-glutamyltransferase increased [Recovering/Resolving]

NARRATIVE: CASE EVENT DATE: 20250401
